FAERS Safety Report 7120143-1 (Version None)
Quarter: 2010Q4

REPORT INFORMATION
  Report Type: 
  Country: None (occurrence: None)
  Receive Date: 20101123
  Receipt Date: 20101112
  Transmission Date: 20110411
  Serious: Yes (Hospitalization)
  Sender: FDA-Public Use
  Company Number: FI-AMGEN-QUU436577

PATIENT

DRUGS (5)
  1. NEUPOGEN [Suspect]
     Indication: MYELODYSPLASTIC SYNDROME
     Dosage: 300 A?G, UNK
     Route: 058
     Dates: start: 20100215, end: 20100317
  2. NEUPOGEN [Suspect]
     Indication: REFRACTORY ANAEMIA WITH RINGED SIDEROBLASTS
  3. ARANESP [Suspect]
     Indication: MYELODYSPLASTIC SYNDROME
     Dosage: 500 A?G, QWK
     Route: 058
     Dates: end: 20100215
  4. ARANESP [Suspect]
     Indication: REFRACTORY ANAEMIA WITH RINGED SIDEROBLASTS
     Dosage: 300 A?G, UNK
     Dates: start: 20100215
  5. ANTIHYPERTENSIVE MEDICATION NOS [Concomitant]

REACTIONS (3)
  - ACUTE INTERSTITIAL PNEUMONITIS [None]
  - HAEMOGLOBIN DECREASED [None]
  - HAEMOGLOBIN INCREASED [None]
